FAERS Safety Report 16923748 (Version 2)
Quarter: 2019Q4

REPORT INFORMATION
  Report Type: Report from Study
  Country: US (occurrence: US)
  Receive Date: 20191016
  Receipt Date: 20191019
  Transmission Date: 20200122
  Serious: Yes (Hospitalization, Disabling, Congenital Anomaly, Other)
  Sender: FDA-Public Use
  Company Number: US-ACCORD-157103

PATIENT
  Sex: Female

DRUGS (1)
  1. METHOTREXATE. [Suspect]
     Active Substance: METHOTREXATE
     Indication: ABORTION INDUCED
     Route: 064

REACTIONS (11)
  - Clinodactyly [Unknown]
  - Syndactyly [Unknown]
  - Blood insulin decreased [Recovered/Resolved]
  - Aplasia [Unknown]
  - Premature baby [Unknown]
  - Feeding disorder [Recovered/Resolved]
  - Foetal exposure during pregnancy [Unknown]
  - Conductive deafness [Unknown]
  - Platelet count decreased [Recovered/Resolved]
  - Foetal methotrexate syndrome [Recovered/Resolved]
  - Synostosis [Unknown]
